FAERS Safety Report 5430820-6 (Version None)
Quarter: 2007Q3

REPORT INFORMATION
  Report Type: 
  Country: None (occurrence: None)
  Receive Date: 20070830
  Receipt Date: 20061205
  Transmission Date: 20080115
  Serious: No
  Sender: FDA-Public Use
  Company Number: A0630413A

PATIENT
  Sex: Female

DRUGS (1)
  1. WELLBUTRIN XL [Suspect]
     Indication: DEPRESSION
     Dosage: 300MG PER DAY
     Route: 048
     Dates: start: 20060601, end: 20060901

REACTIONS (3)
  - ANOREXIA [None]
  - IRRITABILITY [None]
  - NAUSEA [None]
